FAERS Safety Report 5230796-0 (Version None)
Quarter: 2007Q1

REPORT INFORMATION
  Report Type: 
  Country: None (occurrence: None)
  Receive Date: 20070202
  Receipt Date: 20070122
  Transmission Date: 20070707
  Serious: Yes (Life-Threatening, Hospitalization)
  Sender: FDA-Public Use
  Company Number: GXKR2007GB01100

PATIENT
  Age: 62 Year
  Sex: Female

DRUGS (2)
  1. CITALOPRAM HYDROBROMIDE [Suspect]
     Indication: DEPRESSION
     Dosage: 10 MG, ORAL
     Route: 048
     Dates: start: 20061109, end: 20061214
  2. LEVOTHYROXINE SODIUM [Concomitant]

REACTIONS (5)
  - BLOOD BLISTER [None]
  - CONTUSION [None]
  - HAEMORRHAGE [None]
  - PLATELET COUNT DECREASED [None]
  - PURPURA [None]
